FAERS Safety Report 21477171 (Version 1)
Quarter: 2022Q4

REPORT INFORMATION
  Report Type: Spontaneous
  Country: US (occurrence: None)
  Receive Date: 20221018
  Receipt Date: 20221018
  Transmission Date: 20230113
  Serious: No
  Sender: FDA-Public Use
  Company Number: None

PATIENT
  Age: 35 Year
  Sex: Female
  Weight: 199.58 kg

DRUGS (1)
  1. STELARA [Suspect]
     Active Substance: USTEKINUMAB
     Indication: Hidradenitis
     Dosage: OTHER FREQUENCY : WK0ANDWK4ASDIR;?
     Dates: start: 202105

REACTIONS (3)
  - Infection [None]
  - Therapy cessation [None]
  - Therapy change [None]
